FAERS Safety Report 19994220 (Version 1)
Quarter: 2021Q4

REPORT INFORMATION
  Report Type: Spontaneous
  Country: KR (occurrence: KR)
  Receive Date: 20211026
  Receipt Date: 20211026
  Transmission Date: 20220303
  Serious: Yes (Other)
  Sender: FDA-Public Use
  Company Number: KR-LUPIN PHARMACEUTICALS INC.-2021-20259

PATIENT
  Sex: Male

DRUGS (3)
  1. LORAZEPAM [Suspect]
     Active Substance: LORAZEPAM
     Indication: Generalised tonic-clonic seizure
     Dosage: 4 MILLIGRAM (INJECTION)
     Route: 064
  2. LEVETIRACETAM [Suspect]
     Active Substance: LEVETIRACETAM
     Indication: Generalised tonic-clonic seizure
     Dosage: 1500 MILLIGRAM, QD (LOADING DOSE)
     Route: 064
  3. VALPROIC ACID [Suspect]
     Active Substance: VALPROIC ACID
     Indication: Generalised tonic-clonic seizure
     Dosage: UNK
     Route: 064

REACTIONS (2)
  - Foetal exposure during pregnancy [Unknown]
  - Premature baby [Unknown]
